FAERS Safety Report 16949769 (Version 2)
Quarter: 2020Q1

REPORT INFORMATION
  Report Type: Spontaneous
  Country: NL (occurrence: NL)
  Receive Date: 20191023
  Receipt Date: 20200103
  Transmission Date: 20200409
  Serious: Yes (Other)
  Sender: FDA-Public Use
  Company Number: NL-TEVA-2019-NL-1125881

PATIENT
  Age: 55 Year
  Sex: Male
  Weight: 90 kg

DRUGS (12)
  1. PREDNISOLON [Concomitant]
     Active Substance: PREDNISOLONE
     Dosage: 1DD 7.5-10MG
  2. CALCIUMCARBONAAT/COLECALCIFEROL [Concomitant]
     Dosage: 1 DD
  3. ATORVASTATINE [Concomitant]
     Active Substance: ATORVASTATIN
     Dosage: 1 DD 20 MG
  4. ALENDRONINEZUUR [Concomitant]
     Active Substance: ALENDRONIC ACID
     Dosage: 1 X PER WEEK 70 MG
  5. HYDROXYCHLOROQUINE [Concomitant]
     Active Substance: HYDROXYCHLOROQUINE
     Dosage: 1 DD 400 MG
  6. ACETYLSALICYLZUUR [Concomitant]
     Active Substance: ASPIRIN
     Dosage: 1 DD 80 MG
  7. AZATHIOPRINE. [Concomitant]
     Active Substance: AZATHIOPRINE
     Dosage: 1 DD 200 MG
  8. PANTOPRAZOL [Concomitant]
     Active Substance: PANTOPRAZOLE SODIUM
     Dosage: 1 DD 40 MG
  9. GABAPENTINE [Concomitant]
     Active Substance: GABAPENTIN
     Dosage: 3 DD 600 MG
  10. NORTRIPTYLINE [Concomitant]
     Active Substance: NORTRIPTYLINE
     Dosage: 1 DD 75 MG
  11. TERBINAFINE TABLET, 250 MG (MILLIGRAM)TERBINAFINE TABLET 250MG [Suspect]
     Active Substance: TERBINAFINE HYDROCHLORIDE
     Indication: FUNGAL SKIN INFECTION
     Dosage: 1X PER DAY 1 TABLET
     Dates: start: 20190620
  12. RANITIDINE. [Concomitant]
     Active Substance: RANITIDINE
     Dosage: 2 DD 150 MG

REACTIONS (1)
  - Subacute cutaneous lupus erythematosus [Recovering/Resolving]

NARRATIVE: CASE EVENT DATE: 20190801
